FAERS Safety Report 25363170 (Version 1)
Quarter: 2025Q2

REPORT INFORMATION
  Report Type: Spontaneous
  Country: US (occurrence: US)
  Receive Date: 20250527
  Receipt Date: 20250527
  Transmission Date: 20250716
  Serious: No
  Sender: MYLAN
  Company Number: US-MYLANLABS-2025M1042205

PATIENT
  Sex: Male
  Weight: 81.65 kg

DRUGS (1)
  1. PROCTOFOAM HC [Suspect]
     Active Substance: HYDROCORTISONE ACETATE\PRAMOXINE HYDROCHLORIDE
     Indication: Anorectal discomfort

REACTIONS (3)
  - Dizziness [Unknown]
  - Sluggishness [Unknown]
  - Off label use [Unknown]
